FAERS Safety Report 19706715 (Version 2)
Quarter: 2021Q3

REPORT INFORMATION
  Report Type: Spontaneous
  Country: ES (occurrence: ES)
  Receive Date: 20210817
  Receipt Date: 20210907
  Transmission Date: 20211014
  Serious: Yes (Hospitalization)
  Sender: FDA-Public Use
  Company Number: ES-TEVA-2021-ES-1941176

PATIENT
  Age: 80 Year
  Sex: Female

DRUGS (2)
  1. TRAMADOL (2389A) [Suspect]
     Active Substance: TRAMADOL
     Route: 048
     Dates: start: 20190621, end: 20210107
  2. FUROSEMIDA (1615A) [Suspect]
     Active Substance: FUROSEMIDE
     Indication: HYPERTENSION
     Dosage: 40 MG
     Route: 048
     Dates: start: 20190124, end: 20201224

REACTIONS (1)
  - Hyponatraemia [Recovered/Resolved]

NARRATIVE: CASE EVENT DATE: 20201224
